FAERS Safety Report 8166916-8 (Version None)
Quarter: 2012Q1

REPORT INFORMATION
  Report Type: 
  Country: None (occurrence: None)
  Receive Date: 20120221
  Receipt Date: 20120208
  Transmission Date: 20120608
  Serious: Yes (Hospitalization, Other)
  Sender: FDA-Public Use
  Company Number: 2012FO000692

PATIENT
  Age: 37 Year
  Sex: Male

DRUGS (3)
  1. BETAMETHASONE [Suspect]
     Indication: DERMATITIS ATOPIC
     Dosage: 0.05 PCT
  2. BETAMETHASONE DIPROPIONATE [Suspect]
     Indication: DERMATITIS ATOPIC
     Dosage: 0.05 PCT;
  3. PREDNISOLONE ACETATE [Suspect]
     Indication: DERMATITIS ATOPIC
     Dosage: 0.3 PCT

REACTIONS (2)
  - OSTEOCHONDROSIS [None]
  - GLAUCOMA [None]
